FAERS Safety Report 19007184 (Version 1)
Quarter: 2021Q1

REPORT INFORMATION
  Report Type: Spontaneous
  Country: US (occurrence: US)
  Receive Date: 20210312
  Receipt Date: 20210312
  Transmission Date: 20210420
  Serious: Yes (Hospitalization)
  Sender: FDA-Public Use
  Company Number: None

PATIENT
  Age: 59 Year
  Sex: Male

DRUGS (2)
  1. TEMOZOLOMIDE 100MG SUN PHARMACEUTICALS [Suspect]
     Active Substance: TEMOZOLOMIDE
     Route: 048
     Dates: start: 202005, end: 202101
  2. CAPECITABINE 500MG NOVADOZ PHARMACEUTICALS [Suspect]
     Active Substance: CAPECITABINE
     Route: 048
     Dates: start: 201803

REACTIONS (1)
  - Deep vein thrombosis [None]

NARRATIVE: CASE EVENT DATE: 202101
